FAERS Safety Report 7184418-2 (Version None)
Quarter: 2010Q4

REPORT INFORMATION
  Report Type: 
  Country: None (occurrence: None)
  Receive Date: 20101222
  Receipt Date: 20091217
  Transmission Date: 20110411
  Serious: No
  Sender: FDA-Public Use
  Company Number: US-PFIZER INC-2009312323

PATIENT
  Sex: Female
  Weight: 52 kg

DRUGS (4)
  1. DIFLUCAN [Suspect]
     Indication: VULVOVAGINAL CANDIDIASIS
     Dosage: 150 MG, SINGLE
     Route: 048
     Dates: end: 20091217
  2. CLOMID [Concomitant]
  3. SIMPLY SLEEP [Concomitant]
  4. LEVOTHYROXINE [Concomitant]

REACTIONS (4)
  - HYPOAESTHESIA FACIAL [None]
  - NAUSEA [None]
  - SWELLING FACE [None]
  - VULVOVAGINAL MYCOTIC INFECTION [None]
